FAERS Safety Report 6191510-8 (Version None)
Quarter: 2009Q2

REPORT INFORMATION
  Report Type: 
  Country: None (occurrence: None)
  Receive Date: 20090513
  Receipt Date: 20080812
  Transmission Date: 20091009
  Serious: Yes (Other)
  Sender: FDA-Public Use
  Company Number: NL-GENENTECH-282734

PATIENT

DRUGS (2)
  1. RITUXIMAB [Suspect]
     Indication: RHEUMATOID ARTHRITIS
     Dosage: UNK UNK, UNKNOWN
     Route: 042
     Dates: start: 20051201
  2. PREDNISOLONE [Concomitant]
     Indication: DRUG USE FOR UNKNOWN INDICATION
     Dosage: 25 MG, UNKNOWN
     Route: 042

REACTIONS (20)
  - AMYLOIDOSIS [None]
  - CAMPYLOBACTER GASTROENTERITIS [None]
  - COUGH [None]
  - DRUG INEFFECTIVE [None]
  - DYSGEUSIA [None]
  - DYSPNOEA [None]
  - HELICOBACTER INFECTION [None]
  - HERPES ZOSTER [None]
  - HYPERHIDROSIS [None]
  - INFLUENZA LIKE ILLNESS [None]
  - MACULAR HOLE [None]
  - METASTATIC BRONCHIAL CARCINOMA [None]
  - NAUSEA [None]
  - OROPHARYNGEAL PAIN [None]
  - OVARIAN CANCER [None]
  - PAROSMIA [None]
  - PRURITUS [None]
  - PYREXIA [None]
  - UPPER RESPIRATORY TRACT INFECTION [None]
  - URINARY TRACT INFECTION [None]
